FAERS Safety Report 7979335-1 (Version None)
Quarter: 2011Q4

REPORT INFORMATION
  Report Type: 
  Country: None (occurrence: None)
  Receive Date: 20111214
  Receipt Date: 20111130
  Transmission Date: 20120403
  Serious: Yes (Hospitalization, Other)
  Sender: FDA-Public Use
  Company Number: MX-SANOFI-AVENTIS-2011SA080793

PATIENT
  Age: 48 Year
  Sex: Male
  Weight: 83 kg

DRUGS (4)
  1. JANUMET [Concomitant]
     Indication: TYPE 2 DIABETES MELLITUS
     Dosage: ONE AND HALF TABLET IN THE MORNING AND HALF TABLET AFTER FOOD.
     Route: 048
     Dates: start: 20080101
  2. LANTUS [Suspect]
     Indication: TYPE 2 DIABETES MELLITUS
     Route: 058
     Dates: start: 20060101
  3. PLAVIX [Concomitant]
     Indication: PROPHYLAXIS
     Route: 048
     Dates: start: 20080501
  4. FEMULEN [Concomitant]
     Route: 048
     Dates: start: 20081101

REACTIONS (3)
  - CARDIAC DISORDER [None]
  - HYPERGLYCAEMIA [None]
  - HYPERTENSION [None]
